FAERS Safety Report 9915694 (Version 1)
Quarter: 2014Q1

REPORT INFORMATION
  Report Type: Spontaneous
  Country: IT (occurrence: IT)
  Receive Date: 20140221
  Receipt Date: 20140221
  Transmission Date: 20141002
  Serious: Yes (Other)
  Sender: FDA-Public Use
  Company Number: IT-ACCORD-021996

PATIENT
  Age: 45 Year
  Sex: Female

DRUGS (4)
  1. FLUOROURACIL [Suspect]
     Indication: BREAST NEOPLASM
     Route: 042
     Dates: start: 20140116, end: 20140116
  2. CYCLOPHOSPHAMIDE [Suspect]
     Indication: BREAST NEOPLASM
     Route: 042
     Dates: start: 20140116, end: 20140116
  3. EPIRUBICIN [Suspect]
     Indication: BREAST NEOPLASM
     Route: 042
     Dates: start: 20140116, end: 20140116
  4. EUTIROX [Concomitant]
     Dosage: ^50 MCG TABLETS^ 50 TABLETS
     Route: 048

REACTIONS (1)
  - Supraventricular extrasystoles [Recovering/Resolving]
